FAERS Safety Report 9992543 (Version 1)
Quarter: 2014Q1

REPORT INFORMATION
  Report Type: Spontaneous
  Country: AU (occurrence: AU)
  Receive Date: 20140310
  Receipt Date: 20140310
  Transmission Date: 20141002
  Serious: Yes (Other)
  Sender: FDA-Public Use
  Company Number: AU-ASTRAZENECA-2014SE13132

PATIENT
  Age: 52 Year
  Sex: Male

DRUGS (1)
  1. XYLOCAINE WITH EPINEPHRINE [Suspect]
     Indication: NERVE BLOCK
     Route: 053

REACTIONS (4)
  - Paraesthesia [Recovered/Resolved]
  - Sensory loss [Recovered/Resolved]
  - Trigeminal neuritis [Recovered/Resolved]
  - Cervical plexus lesion [Recovered/Resolved]
